FAERS Safety Report 5313133-2 (Version None)
Quarter: 2007Q1

REPORT INFORMATION
  Report Type: 
  Country: None (occurrence: None)
  Receive Date: 20070201
  Receipt Date: 20061109
  Transmission Date: 20070707
  Serious: No
  Sender: FDA-Public Use
  Company Number: VNL_0292_2006

PATIENT
  Age: 87 Year
  Sex: Female
  Weight: 61.6892 kg

DRUGS (7)
  1. APOKYN [Suspect]
     Indication: PARKINSON'S DISEASE
     Dosage: VAR BID SC
     Route: 058
     Dates: start: 20061027, end: 20061106
  2. SINEMET [Concomitant]
  3. COLACE [Concomitant]
  4. PRINIVIL [Concomitant]
  5. VITAMINS [Concomitant]
  6. PREVACID [Concomitant]
  7. LEXAPRO [Concomitant]

REACTIONS (2)
  - NAUSEA [None]
  - VOMITING [None]
